FAERS Safety Report 12041812 (Version 1)
Quarter: 2016Q1

REPORT INFORMATION
  Report Type: Spontaneous
  Country: US (occurrence: US)
  Receive Date: 20160208
  Receipt Date: 20160208
  Transmission Date: 20160526
  Serious: No
  Sender: FDA-Public Use
  Company Number: US-PFIZER INC-2016048925

PATIENT
  Age: 72 Year
  Sex: Male
  Weight: 86 kg

DRUGS (3)
  1. OXYCODONE [Concomitant]
     Active Substance: OXYCODONE
     Indication: PAIN
  2. TOPIRAMATE. [Concomitant]
     Active Substance: TOPIRAMATE
     Indication: NEURALGIA
     Dosage: 25MG
     Dates: start: 2015, end: 2015
  3. GABAPENTIN. [Suspect]
     Active Substance: GABAPENTIN
     Indication: NEURALGIA
     Dosage: 300 MG, 4X/DAY, EVERY 6 HOURS
     Dates: start: 2015

REACTIONS (5)
  - Weight increased [Recovered/Resolved]
  - Condition aggravated [Not Recovered/Not Resolved]
  - Drug ineffective for unapproved indication [Not Recovered/Not Resolved]
  - Pain [Not Recovered/Not Resolved]
  - Vision blurred [Not Recovered/Not Resolved]

NARRATIVE: CASE EVENT DATE: 2015
